FAERS Safety Report 10203418 (Version 1)
Quarter: 2014Q2

REPORT INFORMATION
  Report Type: Report from Study
  Country: IN (occurrence: IN)
  Receive Date: 20140529
  Receipt Date: 20140529
  Transmission Date: 20141212
  Serious: Yes (Death)
  Sender: FDA-Public Use
  Company Number: PHHY2014IN065728

PATIENT
  Sex: Male
  Weight: 59 kg

DRUGS (1)
  1. AFINITOR [Suspect]
     Indication: METASTATIC RENAL CELL CARCINOMA
     Dosage: 10 MG, QD
     Route: 048

REACTIONS (3)
  - Death [Fatal]
  - Stomatitis [Recovered/Resolved]
  - Decreased appetite [Recovered/Resolved]
